FAERS Safety Report 5887402-1 (Version None)
Quarter: 2008Q3

REPORT INFORMATION
  Report Type: 
  Country: None (occurrence: None)
  Receive Date: 20080918
  Receipt Date: 20080909
  Transmission Date: 20090109
  Serious: Yes (Hospitalization)
  Sender: FDA-Public Use
  Company Number: US-JNJFOC-20080902307

PATIENT
  Sex: Female
  Weight: 58.97 kg

DRUGS (4)
  1. REMICADE [Suspect]
     Route: 042
  2. REMICADE [Suspect]
     Indication: RHEUMATOID ARTHRITIS
     Route: 042
  3. METHOTREXATE [Concomitant]
     Indication: RHEUMATOID ARTHRITIS
  4. THYROID MEDICATION [Concomitant]
     Indication: THYROID DISORDER

REACTIONS (5)
  - INFUSION RELATED REACTION [None]
  - MUSCLE SPASMS [None]
  - MYALGIA [None]
  - RASH [None]
  - VOMITING [None]
